FAERS Safety Report 18809628 (Version 1)
Quarter: 2021Q1

REPORT INFORMATION
  Report Type: Spontaneous
  Country: DE (occurrence: DE)
  Receive Date: 20210129
  Receipt Date: 20210129
  Transmission Date: 20210419
  Serious: Yes (Hospitalization)
  Sender: FDA-Public Use
  Company Number: DE-TEVA-2021-DE-1872979

PATIENT
  Age: 67 Year
  Sex: Female

DRUGS (4)
  1. FLUOROURACIL. [Suspect]
     Active Substance: FLUOROURACIL
     Dosage: 1512 MG / 96 H, MOST RECENTLY ON 2010?2020
  2. DEXAMETHASON [Concomitant]
     Active Substance: DEXAMETHASONE
     Dosage: 4 MILLIGRAM DAILY; 4 MG, 1?0?0?0
  3. KREON 25000 [Concomitant]
     Active Substance: PANCRELIPASE
     Dosage: 75000 IU (INTERNATIONAL UNIT) DAILY;  1?1?1?0
  4. METOCLOPRAMID [Concomitant]
     Active Substance: METOCLOPRAMIDE
     Dosage: 30 MILLIGRAM DAILY; 10 MG, 1?1?1?0

REACTIONS (5)
  - General physical health deterioration [Unknown]
  - Weight decreased [Unknown]
  - Nausea [Unknown]
  - Paraesthesia [Unknown]
  - Decreased appetite [Unknown]
